FAERS Safety Report 22632650 (Version 3)
Quarter: 2025Q2

REPORT INFORMATION
  Report Type: Report from Study
  Country: CO (occurrence: CO)
  Receive Date: 20230623
  Receipt Date: 20250629
  Transmission Date: 20250717
  Serious: Yes (Hospitalization, Other)
  Sender: ABBVIE
  Company Number: CO-ABBVIE-5300044

PATIENT
  Age: 74 Year
  Sex: Male
  Weight: 78 kg

DRUGS (2)
  1. SKYRIZI [Suspect]
     Active Substance: RISANKIZUMAB-RZAA
     Indication: Psoriasis
     Dosage: FORM STRENGTH: 75 MILLIGRAMS
     Route: 058
     Dates: start: 20220506, end: 20230310
  2. SKYRIZI [Suspect]
     Active Substance: RISANKIZUMAB-RZAA
     Route: 058

REACTIONS (9)
  - Skull fracture [Unknown]
  - Fall [Recovering/Resolving]
  - Femur fracture [Recovered/Resolved]
  - Joint dislocation [Recovering/Resolving]
  - Haematemesis [Unknown]
  - Loss of consciousness [Unknown]
  - Ulcer [Recovered/Resolved]
  - Limb discomfort [Unknown]
  - Skin discolouration [Unknown]

NARRATIVE: CASE EVENT DATE: 20230101
